FAERS Safety Report 5382715-4 (Version None)
Quarter: 2007Q2

REPORT INFORMATION
  Report Type: 
  Country: None (occurrence: None)
  Receive Date: 20070629
  Receipt Date: 20070112
  Transmission Date: 20071010
  Serious: Yes (Hospitalization)
  Sender: FDA-Public Use
  Company Number: US200701002781

PATIENT
  Age: 60 Year
  Sex: Male

DRUGS (6)
  1. HUMALOG [Suspect]
     Indication: DIABETES MELLITUS INSULIN-DEPENDENT
     Dosage: 15 U, 2/D : 30 U, 2/D
     Dates: start: 20040101
  2. HUMALOG [Suspect]
     Indication: DIABETES MELLITUS INSULIN-DEPENDENT
     Dosage: 15 U, 2/D : 30 U, 2/D
     Dates: start: 20040101
  3. HUMALOG PEN [Suspect]
     Indication: DIABETES MELLITUS INSULIN-DEPENDENT
     Dosage: 15 U, 2/D : 30 U, 2/D;
     Dates: start: 20040101
  4. HUMALOG PEN [Suspect]
     Indication: DIABETES MELLITUS INSULIN-DEPENDENT
     Dosage: 15 U, 2/D : 30 U, 2/D;
     Dates: start: 20040101
  5. LIDOCAINE [Concomitant]
  6. MORPHINE [Concomitant]

REACTIONS (5)
  - BLOOD GLUCOSE INCREASED [None]
  - CARDIAC DISORDER [None]
  - DRUG INEFFECTIVE [None]
  - FEELING ABNORMAL [None]
  - PALPITATIONS [None]
